FAERS Safety Report 20441294 (Version 1)
Quarter: 2022Q1

REPORT INFORMATION
  Report Type: Spontaneous
  Country: CA (occurrence: CA)
  Receive Date: 20220208
  Receipt Date: 20220208
  Transmission Date: 20220423
  Serious: Yes (Other)
  Sender: FDA-Public Use
  Company Number: CA-BEH-2022141586

PATIENT
  Age: 18 Year
  Sex: Male
  Weight: 74.6 kg

DRUGS (8)
  1. PRIVIGEN [Suspect]
     Active Substance: HUMAN IMMUNOGLOBULIN G
     Indication: Immune thrombocytopenia
     Dosage: 20 G - 4/4 (600ML), TOT
     Route: 065
     Dates: start: 20210306, end: 20210306
  2. PRIVIGEN [Suspect]
     Active Substance: HUMAN IMMUNOGLOBULIN G
     Indication: Lymphoma
     Dosage: 5G - 4-4 (100ML), TOT
     Route: 065
     Dates: start: 20210306, end: 20210306
  3. PRIVIGEN [Suspect]
     Active Substance: HUMAN IMMUNOGLOBULIN G
     Indication: Epistaxis
  4. NOSTRIL [PHENYLEPHRINE HYDROCHLORIDE] [Concomitant]
     Dosage: UNK, PRN
  5. CYKLOKARPON [Concomitant]
     Indication: Epistaxis
  6. CYKLOKARPON [Concomitant]
     Indication: Epistaxis
  7. FUSIDIC ACID [Concomitant]
     Active Substance: FUSIDIC ACID
  8. CORTICOTROPIN [Concomitant]
     Active Substance: CORTICOTROPIN

REACTIONS (7)
  - Granulicatella infection [Unknown]
  - Febrile nonhaemolytic transfusion reaction [Unknown]
  - Body temperature increased [Unknown]
  - Chills [Unknown]
  - Blood pressure systolic increased [Unknown]
  - Heart rate increased [Unknown]
  - Skin burning sensation [Unknown]

NARRATIVE: CASE EVENT DATE: 20210306
